FAERS Safety Report 21612823 (Version 1)
Quarter: 2022Q4

REPORT INFORMATION
  Report Type: Spontaneous
  Country: MX (occurrence: MX)
  Receive Date: 20221118
  Receipt Date: 20221118
  Transmission Date: 20230112
  Serious: Yes (Other)
  Sender: FDA-Public Use
  Company Number: MX-SUN PHARMACEUTICAL INDUSTRIES LTD-2022R1-363289

PATIENT
  Age: 49 Year
  Sex: Male

DRUGS (1)
  1. PHENYTOIN [Suspect]
     Active Substance: PHENYTOIN
     Indication: Epilepsy
     Dosage: 300 MILLIGRAM, OD
     Route: 065

REACTIONS (1)
  - Hepatocellular carcinoma [Unknown]
